FAERS Safety Report 9867043 (Version 1)
Quarter: 2014Q1

REPORT INFORMATION
  Report Type: Spontaneous
  Country: US (occurrence: None)
  Receive Date: 20140203
  Receipt Date: 20140203
  Transmission Date: 20141002
  Serious: No
  Sender: FDA-Public Use
  Company Number: None

PATIENT
  Age: 27 Year
  Sex: Female
  Weight: 58.97 kg

DRUGS (3)
  1. LAMOTRIGINE [Suspect]
     Indication: MOOD ALTERED
     Route: 048
     Dates: start: 20101027, end: 20140123
  2. LAMOTRIGINE [Suspect]
     Indication: DEPRESSION
     Route: 048
     Dates: start: 20101027, end: 20140123
  3. LAMOTRIGINE [Suspect]
     Route: 048
     Dates: start: 20101027, end: 20140123

REACTIONS (12)
  - Agitation [None]
  - Emotional disorder [None]
  - Tremor [None]
  - Feeling jittery [None]
  - Fatigue [None]
  - Drug withdrawal syndrome [None]
  - Palpitations [None]
  - Tachycardia [None]
  - Dyspnoea [None]
  - Discomfort [None]
  - Fear [None]
  - Inappropriate schedule of drug administration [None]
